FAERS Safety Report 9964122 (Version 2)
Quarter: 2014Q1

REPORT INFORMATION
  Report Type: Spontaneous
  Country: US (occurrence: US)
  Receive Date: 20140305
  Receipt Date: 20140317
  Transmission Date: 20141002
  Serious: No
  Sender: FDA-Public Use
  Company Number: US-009507513-1402USA012409

PATIENT
  Age: 71 Year
  Sex: Male
  Weight: 49.89 kg

DRUGS (4)
  1. SINEMET [Suspect]
     Indication: PARKINSON^S DISEASE
     Dosage: 2 TABLETS, 5 TIMES PER DAY
     Route: 048
     Dates: start: 201102
  2. LYRICA [Suspect]
     Indication: PARKINSON^S DISEASE
     Dosage: 75 MG, UNK
     Route: 048
     Dates: start: 201401
  3. LYRICA [Suspect]
     Dosage: 75 MG, DAILY
     Dates: start: 201402
  4. LYRICA [Suspect]
     Dosage: 25 MG, DAILY
     Dates: start: 201402

REACTIONS (13)
  - Local swelling [Unknown]
  - Burning sensation [Unknown]
  - Balance disorder [Unknown]
  - Contusion [Unknown]
  - Skin discolouration [Unknown]
  - Clumsiness [Unknown]
  - Gait disturbance [Unknown]
  - Rash erythematous [Unknown]
  - Platelet count decreased [Unknown]
  - Dry mouth [Not Recovered/Not Resolved]
  - Pruritus [Not Recovered/Not Resolved]
  - Rash [Not Recovered/Not Resolved]
  - Platelet count decreased [Unknown]
